FAERS Safety Report 15802261 (Version 2)
Quarter: 2019Q1

REPORT INFORMATION
  Report Type: Spontaneous
  Country: BE (occurrence: BE)
  Receive Date: 20190109
  Receipt Date: 20190114
  Transmission Date: 20190417
  Serious: Yes (Other)
  Sender: FDA-Public Use
  Company Number: BE-BAYER-2019-003975

PATIENT
  Age: 81 Year
  Sex: Male

DRUGS (8)
  1. SORAFENIB (RAF KINASE INHIBITOR) [Suspect]
     Active Substance: SORAFENIB
     Indication: HEPATOCELLULAR CARCINOMA
     Dosage: UNK
     Dates: start: 20180123, end: 20180518
  2. ZOLPIDEM [Concomitant]
     Active Substance: ZOLPIDEM\ZOLPIDEM TARTRATE
     Dosage: 10 MG
  3. DITROPAN [Concomitant]
     Active Substance: OXYBUTYNIN CHLORIDE
     Dosage: 5 MG
  4. TRITACE [Concomitant]
     Active Substance: RAMIPRIL
     Dosage: 5 MG
  5. AMLOR [Concomitant]
     Active Substance: AMLODIPINE BESYLATE
     Dosage: 10 MG
  6. LIPANTHYL [Concomitant]
     Active Substance: FENOFIBRATE
     Dosage: 145 MG
  7. KREDEX [Concomitant]
     Active Substance: CARVEDILOL
     Dosage: 6.25 MG
  8. ASAFLOW [Concomitant]
     Active Substance: ASPIRIN
     Dosage: 80 MG

REACTIONS (2)
  - Palmar-plantar erythrodysaesthesia syndrome [Recovering/Resolving]
  - Mucosal inflammation [Recovering/Resolving]
